FAERS Safety Report 13554161 (Version 1)
Quarter: 2017Q2

REPORT INFORMATION
  Report Type: Spontaneous
  Country: US (occurrence: US)
  Receive Date: 20170517
  Receipt Date: 20170517
  Transmission Date: 20170830
  Serious: No
  Sender: FDA-Public Use
  Company Number: US-PERRIGO-16US015193

PATIENT
  Age: 3 Year
  Sex: Female
  Weight: 16.33 kg

DRUGS (2)
  1. ACETAMINOPHEN. [Suspect]
     Active Substance: ACETAMINOPHEN
     Indication: PRODUCT USED FOR UNKNOWN INDICATION
     Dosage: 120 MG, SINGLE AT 0500
     Route: 054
     Dates: start: 20160413, end: 20160413
  2. ACETAMINOPHEN 32 MG/ML CHILD STRAWBERRY 759 [Suspect]
     Active Substance: ACETAMINOPHEN
     Indication: ACCIDENTAL EXPOSURE TO PRODUCT
     Dosage: 240 MG, SINGLE
     Route: 048
     Dates: start: 20160413, end: 20160413

REACTIONS (2)
  - Accidental exposure to product [Recovered/Resolved]
  - Drug administration error [Recovered/Resolved]

NARRATIVE: CASE EVENT DATE: 20160413
